FAERS Safety Report 10337786 (Version 1)
Quarter: 2014Q3

REPORT INFORMATION
  Report Type: Spontaneous
  Country: US (occurrence: US)
  Receive Date: 20140724
  Receipt Date: 20140724
  Transmission Date: 20150326
  Serious: No
  Sender: FDA-Public Use
  Company Number: US-009507513-1407USA009925

PATIENT
  Sex: Female

DRUGS (1)
  1. GANIRELIX ACETATE INJECTION [Suspect]
     Active Substance: GANIRELIX ACETATE
     Dosage: 0.25 ML, UNK

REACTIONS (4)
  - Drug prescribing error [Unknown]
  - No adverse event [Unknown]
  - Product packaging quantity issue [Unknown]
  - Underdose [Unknown]
